FAERS Safety Report 9261146 (Version 2)
Quarter: 2013Q3

REPORT INFORMATION
  Report Type: Spontaneous
  Country: CA (occurrence: CA)
  Receive Date: 20130429
  Receipt Date: 20130917
  Transmission Date: 20140515
  Serious: Yes (Other)
  Sender: FDA-Public Use
  Company Number: CA-PFIZER INC-2013130014

PATIENT
  Age: 67 Year
  Sex: Female
  Weight: 75 kg

DRUGS (6)
  1. TECTA [Suspect]
     Dosage: 40 MG, 1X/DAY
     Route: 048
     Dates: start: 20121006, end: 20121010
  2. ALVESCO [Concomitant]
     Dosage: AEROSOL, METERED DOSE
  3. BRICANYL [Concomitant]
     Dosage: METERED DOSE
  4. NASONEX [Concomitant]
     Dosage: SPRAY, METERED DOSE
  5. NORVASC [Concomitant]
     Dosage: UNK
  6. SINGULAIR [Concomitant]
     Dosage: UNK

REACTIONS (2)
  - Bronchospasm [Recovered/Resolved]
  - Dyspnoea [Recovered/Resolved]
